FAERS Safety Report 5001588-2 (Version None)
Quarter: 2006Q2

REPORT INFORMATION
  Report Type: 
  Country: None (occurrence: None)
  Receive Date: 20060511
  Receipt Date: 20060511
  Transmission Date: 20061013
  Serious: No
  Sender: FDA-Public Use
  Company Number: None

PATIENT
  Sex: Male
  Weight: 80.7403 kg

DRUGS (1)
  1. ZITHROMAX [Suspect]
     Indication: PNEUMONIA
     Dosage: DAILY IV
     Route: 042
     Dates: start: 20060210, end: 20060213

REACTIONS (3)
  - HYPERHIDROSIS [None]
  - HYPOTENSION [None]
  - PALLOR [None]
